FAERS Safety Report 10080940 (Version 1)
Quarter: 2014Q2

REPORT INFORMATION
  Report Type: Spontaneous
  Country: US (occurrence: US)
  Receive Date: 20140416
  Receipt Date: 20140416
  Transmission Date: 20141212
  Serious: Yes (Other)
  Sender: FDA-Public Use
  Company Number: US-RB-065001-14

PATIENT
  Sex: Male

DRUGS (1)
  1. MUCINEX FULL FORCE NASAL SPRAY [Suspect]
     Indication: PRODUCT USED FOR UNKNOWN INDICATION
     Dosage: 1 SPRAY IN EACH NOSTRIL DAILY AT NIGHT
     Route: 045

REACTIONS (1)
  - Heart rate irregular [Not Recovered/Not Resolved]
